FAERS Safety Report 14284269 (Version 1)
Quarter: 2017Q4

REPORT INFORMATION
  Report Type: Spontaneous
  Country: US (occurrence: US)
  Receive Date: 20171214
  Receipt Date: 20171214
  Transmission Date: 20180321
  Serious: Yes (Other)
  Sender: FDA-Public Use
  Company Number: US-APOTEX-2017AP022309

PATIENT
  Age: 25 Year
  Sex: Female

DRUGS (4)
  1. BACITRACIN. [Concomitant]
     Active Substance: BACITRACIN
     Indication: OPHTHALMIC HERPES SIMPLEX
     Dosage: UNK, TID
     Route: 047
  2. ALBUTEROL                          /00139501/ [Concomitant]
     Active Substance: ALBUTEROL
     Indication: PRODUCT USED FOR UNKNOWN INDICATION
     Dosage: UNK, PRN
     Route: 050
  3. ACYCLOVIR. [Suspect]
     Active Substance: ACYCLOVIR
     Indication: OPHTHALMIC HERPES SIMPLEX
     Dosage: 400 MG, 5 TIMES A DAY
     Route: 048
  4. ARTIFICIAL TEARS                   /00222401/ [Concomitant]
     Active Substance: PROPYLENE GLYCOL
     Indication: OPHTHALMIC HERPES SIMPLEX
     Dosage: UNK, PRN
     Route: 065

REACTIONS (3)
  - Drug effect incomplete [Unknown]
  - Ophthalmic herpes simplex [Recovered/Resolved]
  - Disease progression [Recovered/Resolved]
